FAERS Safety Report 8393554-4 (Version None)
Quarter: 2012Q2

REPORT INFORMATION
  Report Type: 
  Country: None (occurrence: None)
  Receive Date: 20120529
  Receipt Date: 20120517
  Transmission Date: 20120825
  Serious: Yes (Other)
  Sender: FDA-Public Use
  Company Number: GB-BRISTOL-MYERS SQUIBB COMPANY-16551129

PATIENT
  Age: 40 Year
  Sex: Female

DRUGS (5)
  1. SPRYCEL [Suspect]
     Indication: CHRONIC MYELOID LEUKAEMIA
     Dosage: ALSO TAKEN 200MG IN SEP2011 FOR 1 MONTH 100MG:APR2011-MAY2012
     Route: 048
     Dates: start: 20100401, end: 20120501
  2. VENLAFAXINE HCL [Concomitant]
  3. RAMIPRIL [Concomitant]
  4. OMEPRAZOLE [Concomitant]
  5. LANTUS [Concomitant]

REACTIONS (6)
  - ACCIDENTAL OVERDOSE [None]
  - VOMITING [None]
  - ATAXIA [None]
  - SPEECH DISORDER [None]
  - HEMIPARESIS [None]
  - TREMOR [None]
